FAERS Safety Report 7958507-6 (Version None)
Quarter: 2011Q4

REPORT INFORMATION
  Report Type: 
  Country: None (occurrence: None)
  Receive Date: 20111206
  Receipt Date: 20111124
  Transmission Date: 20120403
  Serious: Yes (Other)
  Sender: FDA-Public Use
  Company Number: GB-BIOGENIDEC-2011BI037734

PATIENT
  Age: 44 Year
  Sex: Female

DRUGS (7)
  1. BACLOFEN [Concomitant]
     Indication: MUSCLE SPASTICITY
  2. TYSABRI [Suspect]
     Indication: MULTIPLE SCLEROSIS
     Route: 042
     Dates: start: 20081216
  3. VITAMIN D SUPPLEMENT [Concomitant]
  4. ANTIHYPERTENSIVE [Concomitant]
     Indication: HYPERTENSION
  5. IBUPROFEN [Concomitant]
     Indication: PAIN
  6. ACETAMINOPHEN [Concomitant]
     Indication: PAIN
  7. ANTIMUSCARINIC AGENT [Concomitant]
     Indication: URINARY INCONTINENCE

REACTIONS (2)
  - LIPOMA EXCISION [None]
  - POSTOPERATIVE WOUND INFECTION [None]
